FAERS Safety Report 7742889-4 (Version None)
Quarter: 2011Q3

REPORT INFORMATION
  Report Type: 
  Country: None (occurrence: None)
  Receive Date: 20110831
  Receipt Date: 20110825
  Transmission Date: 20111222
  Serious: Yes (Life-Threatening, Hospitalization, Other)
  Sender: FDA-Public Use
  Company Number: 2011SP040379

PATIENT
  Age: 59 Year
  Sex: Female

DRUGS (10)
  1. HUMULIN R [Concomitant]
  2. NOVOLOG [Concomitant]
  3. RIBASPHERE [Suspect]
     Indication: PRODUCT USED FOR UNKNOWN INDICATION
  4. SEROQUEL [Concomitant]
  5. PEG-INTRON [Suspect]
     Indication: PRODUCT USED FOR UNKNOWN INDICATION
  6. HYDROCHLOROTHIAZIDE [Concomitant]
  7. CITALOPRAM HYDROBROMIDE [Concomitant]
  8. VICTRELIS [Suspect]
     Indication: HEPATITIS C
     Dosage: PO
     Route: 048
     Dates: start: 20110701
  9. DIOVAN [Concomitant]
  10. BUPROPION HCL [Concomitant]

REACTIONS (7)
  - DELIRIUM [None]
  - NAUSEA [None]
  - DIABETES MELLITUS INADEQUATE CONTROL [None]
  - PLATELET COUNT DECREASED [None]
  - EPISTAXIS [None]
  - HALLUCINATION [None]
  - DEHYDRATION [None]
